FAERS Safety Report 6232256-7 (Version None)
Quarter: 2009Q2

REPORT INFORMATION
  Report Type: 
  Country: None (occurrence: None)
  Receive Date: 20090617
  Receipt Date: 20090609
  Transmission Date: 20091009
  Serious: Yes (Hospitalization)
  Sender: FDA-Public Use
  Company Number: DE-PFIZER INC-2009219517

PATIENT

DRUGS (8)
  1. SUNITINIB MALATE [Suspect]
     Indication: METASTATIC RENAL CELL CARCINOMA
     Dosage: UNK
     Route: 048
     Dates: start: 20090101, end: 20090428
  2. MARCUMAR [Concomitant]
     Indication: PROPHYLAXIS
     Dosage: UNK
     Dates: start: 20081119
  3. BELOC ZOK [Concomitant]
     Dosage: UNK
  4. LERCANIDIPINE [Concomitant]
     Dosage: UNK
  5. ACTONEL PLUS CALCIUM D [Concomitant]
  6. ACETYLCYSTEINE [Concomitant]
     Indication: PROPHYLAXIS
     Dosage: UNK
  7. CALCIUM [Concomitant]
     Dosage: UNK
  8. KALINOR [Concomitant]
     Dosage: UNK
     Dates: start: 20081101

REACTIONS (2)
  - DYSPNOEA [None]
  - PLEURAL EFFUSION [None]
